FAERS Safety Report 12778178 (Version 2)
Quarter: 2025Q4

REPORT INFORMATION
  Report Type: Spontaneous
  Country: EU (occurrence: EU)
  Receive Date: 20160925
  Receipt Date: 20251030
  Transmission Date: 20260118
  Serious: Yes (Other)
  Sender: NOVARTIS
  Company Number: PHHY2016IT127133

PATIENT

DRUGS (4)
  1. CYCLOSPORINE [Suspect]
     Active Substance: CYCLOSPORINE
     Indication: Foetal exposure during pregnancy
     Dosage: MATERNAL DOSE 300 MG QW
     Route: 064
  2. AZATHIOPRINE [Suspect]
     Active Substance: AZATHIOPRINE
     Indication: Foetal exposure during pregnancy
     Dosage: MATERNAL DOSE 200 MG QW
     Route: 064
  3. PREDNISONE [Suspect]
     Active Substance: PREDNISONE
     Dosage: MATERNAL DOSE 15 MG QW
     Route: 064
  4. ASPIRIN [Suspect]
     Active Substance: ASPIRIN
     Indication: Foetal exposure during pregnancy
     Dosage: MATERNAL DOSE 100 MG QD
     Route: 064

REACTIONS (3)
  - Foetal growth restriction [Unknown]
  - Low birth weight baby [Unknown]
  - Foetal exposure during pregnancy [Unknown]
